FAERS Safety Report 15343289 (Version 1)
Quarter: 2018Q3

REPORT INFORMATION
  Report Type: Report from Study
  Country: US (occurrence: US)
  Receive Date: 20180903
  Receipt Date: 20180903
  Transmission Date: 20181010
  Serious: Yes (Other)
  Sender: FDA-Public Use
  Company Number: US-EMD SERONO-E2B_90056835

PATIENT
  Sex: Female

DRUGS (1)
  1. REBIF [Suspect]
     Active Substance: INTERFERON BETA-1A
     Indication: MULTIPLE SCLEROSIS
     Route: 058
     Dates: start: 20161219

REACTIONS (6)
  - Intestinal prolapse [Unknown]
  - Ill-defined disorder [Unknown]
  - Incontinence [Unknown]
  - Cholelithiasis [Unknown]
  - Injection site pain [Unknown]
  - Gallbladder disorder [Unknown]
